FAERS Safety Report 24451441 (Version 2)
Quarter: 2024Q4

REPORT INFORMATION
  Report Type: Report from Study
  Country: BR (occurrence: BR)
  Receive Date: 20241017
  Receipt Date: 20241114
  Transmission Date: 20250115
  Serious: Yes (Hospitalization, Other)
  Sender: TAKEDA
  Company Number: BR-TAKEDA-2024TUS102283

PATIENT
  Age: 14 Year
  Sex: Male

DRUGS (2)
  1. HEMO-8R [Suspect]
     Active Substance: ANTIHEMOPHILIC FACTOR, HUMAN RECOMBINANT
     Indication: Factor VIII deficiency
     Dosage: 1000 INTERNATIONAL UNIT, 3/WEEK
  2. HEMO-8R [Suspect]
     Active Substance: ANTIHEMOPHILIC FACTOR, HUMAN RECOMBINANT
     Indication: Haemophilia

REACTIONS (10)
  - Cleft lip [Recovering/Resolving]
  - Cleft palate [Recovering/Resolving]
  - Haemorrhage [Unknown]
  - General physical health deterioration [Unknown]
  - Post procedural haemorrhage [Unknown]
  - Vein rupture [Recovering/Resolving]
  - Injury [Unknown]
  - Fear [Unknown]
  - Inferiority complex [Unknown]
  - Product use in unapproved indication [Unknown]

NARRATIVE: CASE EVENT DATE: 20240917
